FAERS Safety Report 7183297-7 (Version None)
Quarter: 2010Q4

REPORT INFORMATION
  Report Type: 
  Country: None (occurrence: None)
  Receive Date: 20101222
  Receipt Date: 20100722
  Transmission Date: 20110411
  Serious: No
  Sender: FDA-Public Use
  Company Number: A0871901A

PATIENT
  Age: 27 Year
  Sex: Female

DRUGS (2)
  1. FLUTICASONE PROPIONATE [Suspect]
     Indication: MULTIPLE ALLERGIES
     Dosage: 2SPR PER DAY
     Route: 045
     Dates: start: 20090708, end: 20100601
  2. BIRTH CONTROL PILL [Concomitant]

REACTIONS (2)
  - URTICARIA [None]
  - VOMITING [None]
